FAERS Safety Report 7759587-3 (Version None)
Quarter: 2011Q3

REPORT INFORMATION
  Report Type: 
  Country: None (occurrence: None)
  Receive Date: 20110919
  Receipt Date: 20110906
  Transmission Date: 20111222
  Serious: Yes (Other)
  Sender: FDA-Public Use
  Company Number: US-JNJFOC-20110904050

PATIENT
  Age: 83 Year
  Sex: Female
  Weight: 52.16 kg

DRUGS (2)
  1. TYLENOL (CAPLET) [Suspect]
     Route: 048
  2. TYLENOL (CAPLET) [Suspect]
     Indication: MUSCLE SPASMS
     Dosage: 2 CAPLETS, 2-3 TIMES A DAY
     Route: 048
     Dates: start: 19950101, end: 20020201

REACTIONS (1)
  - RECTAL HAEMORRHAGE [None]
